FAERS Safety Report 6189349-2 (Version None)
Quarter: 2009Q2

REPORT INFORMATION
  Report Type: 
  Country: None (occurrence: None)
  Receive Date: 20090512
  Receipt Date: 20090424
  Transmission Date: 20091009
  Serious: Yes (Hospitalization, Other)
  Sender: FDA-Public Use
  Company Number: ADE# 09-164DPR

PATIENT
  Age: 86 Year
  Sex: Female

DRUGS (24)
  1. DIGOXIN [Suspect]
     Indication: CARDIAC FIBRILLATION
     Dates: start: 20090227
  2. ZYVOX [Concomitant]
  3. BUPROPION [Concomitant]
  4. ACEPHEN [Concomitant]
  5. CALCIUM [Concomitant]
  6. CLONIDINE [Concomitant]
  7. PERCOCET [Concomitant]
  8. TEMAZEPAM [Concomitant]
  9. ZANTAC [Concomitant]
  10. COREG [Concomitant]
  11. LISINOPRIL [Concomitant]
  12. CARASATE [Concomitant]
  13. NITROGLYCERIN [Concomitant]
  14. MAG-OXIDE [Concomitant]
  15. ASPIRIN [Concomitant]
  16. OXAZEPAM [Concomitant]
  17. AMLODIPINE [Concomitant]
  18. CLONAZEPAM [Concomitant]
  19. ACETAMINOPHEN [Concomitant]
  20. MILK OF MAGNESIA TAB [Concomitant]
  21. SYNTHROID [Concomitant]
  22. ZINC [Concomitant]
  23. ASCORBIC ACID [Concomitant]
  24. UNKNOWN DROPS FOR GLAUCOMA [Concomitant]

REACTIONS (16)
  - ABASIA [None]
  - DEPERSONALISATION [None]
  - DYSPEPSIA [None]
  - DYSSTASIA [None]
  - GASTRIC HAEMORRHAGE [None]
  - GASTROENTERITIS [None]
  - HEART RATE DECREASED [None]
  - HYPOPHAGIA [None]
  - MUSCULAR WEAKNESS [None]
  - PALPITATIONS [None]
  - SKIN DISCOLOURATION [None]
  - SOMNOLENCE [None]
  - STAPHYLOCOCCAL INFECTION [None]
  - URINARY TRACT INFECTION [None]
  - VULVOVAGINAL BURNING SENSATION [None]
  - VULVOVAGINAL PRURITUS [None]
